FAERS Safety Report 24655300 (Version 2)
Quarter: 2025Q3

REPORT INFORMATION
  Report Type: Spontaneous
  Country: US (occurrence: US)
  Receive Date: 20241123
  Receipt Date: 20250816
  Transmission Date: 20251020
  Serious: No
  Sender: ALEXION PHARMACEUTICALS
  Company Number: US-AstraZeneca-CH-00751558A

PATIENT
  Sex: Female

DRUGS (2)
  1. FARXIGA [Suspect]
     Active Substance: DAPAGLIFLOZIN PROPANEDIOL
  2. LASIX [Concomitant]
     Active Substance: FUROSEMIDE
     Route: 065

REACTIONS (7)
  - Dehydration [Unknown]
  - Pollakiuria [Unknown]
  - Skin exfoliation [Unknown]
  - Rash [Unknown]
  - Thirst [Unknown]
  - Hyperhidrosis [Unknown]
  - Dizziness [Unknown]
